FAERS Safety Report 10378151 (Version 1)
Quarter: 2014Q1

REPORT INFORMATION
  Report Type: Spontaneous
  Country: US (occurrence: None)
  Receive Date: 20140306
  Receipt Date: 20140306
  Transmission Date: 20141002
  Serious: Yes (Other)
  Sender: FDA-Public Use
  Company Number: 163-21880-13013297

PATIENT
  Age: 73 Year
  Sex: Male

DRUGS (6)
  1. REVLIMID [Suspect]
     Indication: MYELODYSPLASTIC SYNDROME
     Dosage: 10MG, 21 IN 28 D, PO
     Route: 048
     Dates: start: 201201, end: 201202
  2. EXJADE (DEFERASIROX) DISPERSIBLE TABLET [Concomitant]
  3. LEVOTHYROXINE [Concomitant]
  4. FLUOXETINE [Concomitant]
  5. METHYLPHENIDATE [Concomitant]
  6. CHOLECALCIFEROL [Concomitant]

REACTIONS (1)
  - Pancytopenia [None]
